FAERS Safety Report 4719223-7 (Version None)
Quarter: 2005Q3

REPORT INFORMATION
  Report Type: 
  Country: None (occurrence: None)
  Receive Date: 20050718
  Receipt Date: 20050718
  Transmission Date: 20060218
  Serious: No
  Sender: FDA-Public Use
  Company Number: None

PATIENT
  Age: 58 Year
  Sex: Male
  Weight: 86 kg

DRUGS (1)
  1. FLUROESCEIN INJ 100MG/ML, 5ML VIAL AKORN [Suspect]
     Indication: ANGIOGRAM
     Dosage: 500 MG ONE TIME DOSE INTRAVENOUS
     Route: 042
     Dates: start: 20050505, end: 20050505

REACTIONS (3)
  - PRURITUS [None]
  - THROAT TIGHTNESS [None]
  - VOMITING [None]
